FAERS Safety Report 11026343 (Version 3)
Quarter: 2022Q1

REPORT INFORMATION
  Report Type: Report from Study
  Country: DE (occurrence: DE)
  Receive Date: 20150414
  Receipt Date: 20220120
  Transmission Date: 20220423
  Serious: Yes (Hospitalization)
  Sender: FDA-Public Use
  Company Number: DE-GILEAD-2015-0147870

PATIENT
  Age: 28 Year
  Sex: Female
  Weight: 81 kg

DRUGS (4)
  1. SOFOSBUVIR [Suspect]
     Active Substance: SOFOSBUVIR
     Indication: Chronic hepatitis C
     Dosage: 400 MG, QD
     Route: 048
     Dates: start: 20140926, end: 20141020
  2. DACLATASVIR DIHYDROCHLORIDE [Suspect]
     Active Substance: DACLATASVIR DIHYDROCHLORIDE
     Indication: Chronic hepatitis C
     Dosage: 60 MG, QD
     Route: 048
     Dates: start: 20140926, end: 20141020
  3. BISOPROLOL [Concomitant]
     Active Substance: BISOPROLOL
     Indication: Product used for unknown indication
     Dosage: 5 MG, UNK
     Route: 065
     Dates: start: 20061101
  4. OLANZAPINE [Concomitant]
     Active Substance: OLANZAPINE
     Indication: Product used for unknown indication
     Dosage: UNK
     Route: 065
     Dates: start: 20141020, end: 20141119

REACTIONS (3)
  - Delusional disorder, unspecified type [Recovered/Resolved]
  - Decreased appetite [Unknown]
  - Skin disorder [Unknown]

NARRATIVE: CASE EVENT DATE: 20141020
